FAERS Safety Report 21225669 (Version 1)
Quarter: 2022Q3

REPORT INFORMATION
  Report Type: Spontaneous
  Country: US (occurrence: US)
  Receive Date: 20220818
  Receipt Date: 20220818
  Transmission Date: 20221027
  Serious: No
  Sender: FDA-Public Use
  Company Number: US-TOLMAR, INC.-22US035935

PATIENT

DRUGS (2)
  1. ELIGARD [Suspect]
     Active Substance: LEUPROLIDE ACETATE
     Indication: Product used for unknown indication
     Dosage: UNK
  2. XTANDI [Suspect]
     Active Substance: ENZALUTAMIDE
     Indication: Product used for unknown indication
     Dosage: UNK
     Dates: end: 20210601

REACTIONS (11)
  - Exercise tolerance decreased [Unknown]
  - Herpes zoster reactivation [Unknown]
  - Eczema [Unknown]
  - Gingivitis [Unknown]
  - Nightmare [Unknown]
  - Sleep disorder [Unknown]
  - Productive cough [Unknown]
  - Cough [Unknown]
  - Fatigue [Unknown]
  - Constipation [Unknown]
  - Weight increased [Unknown]
